FAERS Safety Report 19087361 (Version 2)
Quarter: 2021Q2

REPORT INFORMATION
  Report Type: Spontaneous
  Country: US (occurrence: US)
  Receive Date: 20210402
  Receipt Date: 20210420
  Transmission Date: 20210717
  Serious: Yes (Other)
  Sender: FDA-Public Use
  Company Number: US-NOVOPROD-798451

PATIENT
  Age: 73 Year
  Sex: Female

DRUGS (3)
  1. PREDNISOLONE [PREDNISOLONE SODIUM PHOSPHATE] [Suspect]
     Active Substance: PREDNISOLONE SODIUM PHOSPHATE
     Indication: OPHTHALMIC HERPES ZOSTER
     Dosage: 1% OPHTHALMIC SOLUTION
     Route: 047
     Dates: start: 2019
  2. VICTOZA [Suspect]
     Active Substance: LIRAGLUTIDE
     Indication: DIABETES MELLITUS
     Dosage: 1.2 MG, QD
     Route: 058
     Dates: start: 2018
  3. VALTREX [Suspect]
     Active Substance: VALACYCLOVIR HYDROCHLORIDE
     Indication: OPHTHALMIC HERPES ZOSTER
     Dosage: UNK
     Dates: start: 2019

REACTIONS (1)
  - Cataract [Not Recovered/Not Resolved]
